FAERS Safety Report 14251990 (Version 7)
Quarter: 2018Q2

REPORT INFORMATION
  Report Type: Report from Study
  Country: CA (occurrence: CA)
  Receive Date: 20171205
  Receipt Date: 20180423
  Transmission Date: 20180711
  Serious: Yes (Other)
  Sender: FDA-Public Use
  Company Number: CA-GLAXOSMITHKLINE-CA2017GSK121256

PATIENT
  Age: 61 Year
  Sex: Female

DRUGS (6)
  1. MEPOLIZUMAB [Suspect]
     Active Substance: MEPOLIZUMAB
     Dosage: 100 MG, Z
     Route: 042
  2. PREDNISONE. [Concomitant]
     Active Substance: PREDNISONE
     Indication: PRODUCT USED FOR UNKNOWN INDICATION
     Dosage: 10 MG, 1D
  3. MEPOLIZUMAB [Suspect]
     Active Substance: MEPOLIZUMAB
     Dosage: 100 MG, Z
     Route: 042
  4. MEPOLIZUMAB [Suspect]
     Active Substance: MEPOLIZUMAB
     Dosage: 100 MG, Z
     Route: 042
  5. BISOPROLOL [Concomitant]
     Active Substance: BISOPROLOL
     Indication: PRODUCT USED FOR UNKNOWN INDICATION
     Dosage: UNK
  6. MEPOLIZUMAB [Suspect]
     Active Substance: MEPOLIZUMAB
     Indication: ASTHMA
     Dosage: 100 MG, Z
     Route: 042
     Dates: start: 20170705

REACTIONS (20)
  - Sinusitis [Unknown]
  - Energy increased [Unknown]
  - Myalgia [Unknown]
  - Wheezing [Unknown]
  - Sinus pain [Unknown]
  - Vertigo [Unknown]
  - Drug ineffective [Unknown]
  - Chest discomfort [Unknown]
  - Weight decreased [Unknown]
  - Condition aggravated [Unknown]
  - Back pain [Unknown]
  - Fatigue [Unknown]
  - Headache [Unknown]
  - Hypersensitivity [Unknown]
  - Therapeutic response unexpected [Unknown]
  - Urinary tract infection [Recovered/Resolved]
  - Lung infection [Unknown]
  - Malaise [Unknown]
  - Heart rate decreased [Unknown]
  - Dyspnoea [Unknown]

NARRATIVE: CASE EVENT DATE: 20170815
